FAERS Safety Report 5038319-6 (Version None)
Quarter: 2006Q2

REPORT INFORMATION
  Report Type: 
  Country: None (occurrence: None)
  Receive Date: 20060627
  Receipt Date: 20060627
  Transmission Date: 20061013
  Serious: Yes (Hospitalization)
  Sender: FDA-Public Use
  Company Number: None

PATIENT
  Age: 60 Year
  Sex: Male
  Weight: 80.2867 kg

DRUGS (2)
  1. BACTRIM DS [Suspect]
     Dosage: ONE TABLET BID
  2. LOSARTAN POSTASSIUM [Suspect]
     Dosage: 100 MG PO QD
     Route: 048

REACTIONS (1)
  - HYPERKALAEMIA [None]
